FAERS Safety Report 4752868-7 (Version None)
Quarter: 2005Q3

REPORT INFORMATION
  Report Type: 
  Country: None (occurrence: None)
  Receive Date: 20050714
  Receipt Date: 20040901
  Transmission Date: 20060218
  Serious: Yes (Hospitalization)
  Sender: FDA-Public Use
  Company Number: 200413955US

PATIENT
  Age: 62 Year
  Sex: Female
  Weight: 53.6 kg

DRUGS (10)
  1. TAXOTERE [Suspect]
     Indication: NON-SMALL CELL LUNG CANCER
     Dosage: 35 (ON 3 WEEKS, OFF 1 WEEK),MG QW
     Dates: start: 20040318, end: 20040318
  2. TAXOTERE [Suspect]
     Indication: NON-SMALL CELL LUNG CANCER
  3. WELLBUTRIN [Suspect]
     Indication: SMOKING CESSATION THERAPY
     Dates: end: 20040325
  4. FOSAMAX [Concomitant]
  5. INHALERS NOS [Concomitant]
  6. RADIATIONS THERAPY NOS [Concomitant]
  7. DECADRON [Concomitant]
  8. IRPRATROPIUM BROMIDE, SALBUTAMOL SULFATE (COMBIVENT) [Concomitant]
  9. NEXIUM [Concomitant]
  10. FLUTICASONE PROPIONATE, SALMETEROL XINAFOATE (ADVAIR DISKUS) [Concomitant]

REACTIONS (7)
  - ASTHENIA [None]
  - DYSKINESIA [None]
  - FEELING ABNORMAL [None]
  - GRAND MAL CONVULSION [None]
  - LOSS OF CONSCIOUSNESS [None]
  - URINARY INCONTINENCE [None]
  - WHITE BLOOD CELL COUNT INCREASED [None]
